FAERS Safety Report 8555803 (Version 6)
Quarter: 2016Q2

REPORT INFORMATION
  Report Type: Spontaneous
  Country: JP (occurrence: JP)
  Receive Date: 20120503
  Receipt Date: 20160428
  Transmission Date: 20160815
  Serious: Yes (Other)
  Sender: FDA-Public Use
  Company Number: ADR-2011-10531

PATIENT
  Age: 36 Year
  Sex: Female

DRUGS (3)
  1. GABALON [Suspect]
     Active Substance: BACLOFEN
     Dosage: 15 MG/DAY
     Route: 048
     Dates: end: 20121217
  2. GABALON [Suspect]
     Active Substance: BACLOFEN
     Dosage: 600 MCG/DAY
     Route: 037
     Dates: start: 20091109
  3. GABALON [Suspect]
     Active Substance: BACLOFEN
     Dosage: 550 MCG/DAY
     Route: 037

REACTIONS (12)
  - White blood cell count increased [Recovered/Resolved]
  - Medical device site reaction [Recovered/Resolved]
  - Diffuse axonal injury [Unknown]
  - Pyrexia [Recovered/Resolved]
  - Nausea [Recovered/Resolved]
  - Incorrect dose administered [Recovered/Resolved]
  - Muscle spasms [Recovered/Resolved]
  - Brain hypoxia [Unknown]
  - Vomiting [Recovered/Resolved]
  - Medical device site inflammation [Recovered/Resolved]
  - Medical device site swelling [Recovered/Resolved]
  - Implant site extravasation [Recovered/Resolved]
